FAERS Safety Report 8549797-X (Version None)
Quarter: 2012Q3

REPORT INFORMATION
  Report Type: 
  Country: None (occurrence: None)
  Receive Date: 20120730
  Receipt Date: 20120724
  Transmission Date: 20120928
  Serious: Yes (Hospitalization)
  Sender: FDA-Public Use
  Company Number: JP-009507513-1207JPN009379

PATIENT

DRUGS (3)
  1. PEG-INTRON [Suspect]
     Route: 058
     Dates: end: 20120708
  2. TELAVIC [Suspect]
     Route: 048
     Dates: start: 20120530, end: 20120708
  3. REBETOL [Suspect]
     Route: 048
     Dates: end: 20120708

REACTIONS (1)
  - DRUG ERUPTION [None]
